FAERS Safety Report 6166208-2 (Version None)
Quarter: 2009Q2

REPORT INFORMATION
  Report Type: 
  Country: None (occurrence: None)
  Receive Date: 20090424
  Receipt Date: 20090414
  Transmission Date: 20091009
  Serious: Yes (Hospitalization)
  Sender: FDA-Public Use
  Company Number: JP-NOVOPROD-286194

PATIENT
  Age: 61 Year
  Sex: Male

DRUGS (3)
  1. LEVEMIR [Suspect]
     Indication: DIABETES MELLITUS
     Route: 058
  2. NOVORAPID CHU FLEXPEN [Suspect]
     Dosage: 15 U, UNK
     Route: 058
  3. LANTUS [Concomitant]

REACTIONS (1)
  - HEPATITIS ACUTE [None]
